FAERS Safety Report 5296006-3 (Version None)
Quarter: 2007Q2

REPORT INFORMATION
  Report Type: 
  Country: None (occurrence: None)
  Receive Date: 20070406
  Receipt Date: 20070328
  Transmission Date: 20071010
  Serious: Yes (Other)
  Sender: FDA-Public Use
  Company Number: 239067

PATIENT

DRUGS (4)
  1. RITUXAN [Suspect]
     Indication: SYSTEMIC LUPUS ERYTHEMATOSUS
     Dosage: SEE IMAGE
     Dates: start: 20050317, end: 20050331
  2. RITUXAN [Suspect]
     Indication: SYSTEMIC LUPUS ERYTHEMATOSUS
     Dosage: SEE IMAGE
     Dates: start: 20060614, end: 20060628
  3. RITUXAN [Suspect]
     Indication: SYSTEMIC LUPUS ERYTHEMATOSUS
     Dosage: SEE IMAGE
     Dates: start: 20070110, end: 20070124
  4. IMMUNOSUPPRESSANT NOS (IMMUNOSUPPRESSANT NOS) [Concomitant]

REACTIONS (8)
  - ARTHRITIS [None]
  - CONDITION AGGRAVATED [None]
  - CSF NEUTROPHIL COUNT INCREASED [None]
  - DRUG EFFECT DECREASED [None]
  - HEADACHE [None]
  - MYELITIS [None]
  - PYREXIA [None]
  - SYSTEMIC LUPUS ERYTHEMATOSUS [None]
